FAERS Safety Report 7904177-2 (Version None)
Quarter: 2011Q4

REPORT INFORMATION
  Report Type: 
  Country: None (occurrence: None)
  Receive Date: 20111109
  Receipt Date: 20111108
  Transmission Date: 20120403
  Serious: Yes (Hospitalization, Other)
  Sender: FDA-Public Use
  Company Number: GB-PFIZER INC-2011273880

PATIENT
  Age: 67 Year
  Sex: Female
  Weight: 83.5 kg

DRUGS (3)
  1. DIAZEPAM [Concomitant]
  2. MIRTAZAPINE [Suspect]
     Indication: DEPRESSION
     Dosage: 45 MG, UNK
     Route: 048
     Dates: start: 20110831, end: 20111014
  3. PREGABALIN [Suspect]
     Indication: MOOD ALTERED
     Dosage: 225 MG, UNK
     Route: 048
     Dates: start: 20110831

REACTIONS (2)
  - LIVER FUNCTION TEST ABNORMAL [None]
  - HEPATITIS [None]
